FAERS Safety Report 7130766-1 (Version None)
Quarter: 2010Q4

REPORT INFORMATION
  Report Type: 
  Country: None (occurrence: None)
  Receive Date: 20101201
  Receipt Date: 20101124
  Transmission Date: 20110411
  Serious: Yes (Hospitalization, Other)
  Sender: FDA-Public Use
  Company Number: BR-ROCHE-736135

PATIENT
  Sex: Male
  Weight: 76 kg

DRUGS (10)
  1. PEGINTERFERON ALFA-2A [Suspect]
     Indication: HEPATITIS C
     Route: 058
     Dates: start: 20060101
  2. PEGINTERFERON ALFA-2A [Suspect]
     Route: 058
  3. PEGINTERFERON ALFA-2A [Suspect]
     Route: 058
     Dates: end: 20100101
  4. ALDACTONE [Concomitant]
  5. LASIX [Concomitant]
  6. PROPRANOLOL [Concomitant]
  7. FOLIC ACID [Concomitant]
  8. SYNTHROID [Concomitant]
  9. SUPRADYN [Concomitant]
  10. METFORMIN HCL [Concomitant]

REACTIONS (11)
  - ASTHENIA [None]
  - DRUG INEFFECTIVE [None]
  - FATIGUE [None]
  - HAEMOGLOBIN DECREASED [None]
  - IMMUNODEFICIENCY [None]
  - IRON DEFICIENCY [None]
  - PLATELET COUNT DECREASED [None]
  - PRURITUS [None]
  - VARICES OESOPHAGEAL [None]
  - VARICOSE VEIN [None]
  - WHITE BLOOD CELL COUNT DECREASED [None]
